FAERS Safety Report 26053552 (Version 1)
Quarter: 2025Q4

REPORT INFORMATION
  Report Type: Spontaneous
  Country: US (occurrence: US)
  Receive Date: 20251117
  Receipt Date: 20251117
  Transmission Date: 20260117
  Serious: Yes (Hospitalization, Other)
  Sender: ROCHE
  Company Number: US-ROCHE-10000435430

PATIENT
  Age: 70 Year
  Sex: Female

DRUGS (10)
  1. ATEZOLIZUMAB [Suspect]
     Active Substance: ATEZOLIZUMAB
     Indication: Non-small cell lung cancer
     Route: 065
  2. BUSPIRONE [Concomitant]
     Active Substance: BUSPIRONE HYDROCHLORIDE
  3. CLONAZEPAM [Concomitant]
     Active Substance: CLONAZEPAM
  4. DESVENLAFAXINE [Concomitant]
     Active Substance: DESVENLAFAXINE
  5. FLUOXETINE [Concomitant]
     Active Substance: FLUOXETINE HYDROCHLORIDE
  6. OLANZAPINE [Concomitant]
     Active Substance: OLANZAPINE
  7. ROSUVASTATIN [Concomitant]
     Active Substance: ROSUVASTATIN
  8. TOPIRAMATE [Concomitant]
     Active Substance: TOPIRAMATE
  9. CARBOPLATIN [Concomitant]
     Active Substance: CARBOPLATIN
  10. PACLITAXEL [Concomitant]
     Active Substance: PACLITAXEL

REACTIONS (3)
  - Aplastic anaemia [Recovering/Resolving]
  - Hepatitis [Recovering/Resolving]
  - Febrile neutropenia [Recovering/Resolving]
